FAERS Safety Report 5623023-3 (Version None)
Quarter: 2008Q1

REPORT INFORMATION
  Report Type: 
  Country: None (occurrence: None)
  Receive Date: 20080212
  Receipt Date: 20080129
  Transmission Date: 20080703
  Serious: Yes (Other)
  Sender: FDA-Public Use
  Company Number: US-AMGEN-STX263049

PATIENT
  Sex: Female

DRUGS (2)
  1. ENBREL [Suspect]
     Indication: RHEUMATOID ARTHRITIS
     Route: 058
     Dates: start: 20080117
  2. LEFLUNOMIDE [Concomitant]
     Route: 048
     Dates: start: 20060101

REACTIONS (5)
  - HEADACHE [None]
  - NASAL CONGESTION [None]
  - PRODUCTIVE COUGH [None]
  - RHINORRHOEA [None]
  - SYSTEMIC LUPUS ERYTHEMATOSUS RASH [None]
